FAERS Safety Report 9645849 (Version 1)
Quarter: 2013Q4

REPORT INFORMATION
  Report Type: Spontaneous
  Country: GB (occurrence: GB)
  Receive Date: 20131025
  Receipt Date: 20131025
  Transmission Date: 20140711
  Serious: Yes (Life-Threatening, Hospitalization)
  Sender: FDA-Public Use
  Company Number: PHHY2013GB116834

PATIENT
  Age: 51 Year
  Sex: Female
  Weight: 113 kg

DRUGS (7)
  1. CO-AMOXICLAV [Suspect]
     Indication: PLEURITIC PAIN
     Route: 048
     Dates: start: 201307
  2. URSODEOXYCHOLIC ACID [Concomitant]
  3. LANTUS [Concomitant]
  4. NOVORAPID [Concomitant]
  5. OMEPRAZOLE [Concomitant]
  6. FERROUS SULPHATE [Concomitant]
  7. NASONEX [Concomitant]

REACTIONS (5)
  - Liver injury [Unknown]
  - Jaundice [Unknown]
  - Condition aggravated [Unknown]
  - Ascites [Unknown]
  - Oedema [Unknown]
